FAERS Safety Report 12091229 (Version 1)
Quarter: 2016Q1

REPORT INFORMATION
  Report Type: Spontaneous
  Country: IT (occurrence: IT)
  Receive Date: 20160218
  Receipt Date: 20160218
  Transmission Date: 20160526
  Serious: Yes (Other)
  Sender: FDA-Public Use
  Company Number: IT-MYLANLABS-2016M1006270

PATIENT

DRUGS (4)
  1. PREDNISONE. [Suspect]
     Active Substance: PREDNISONE
     Indication: IMMUNOSUPPRESSANT DRUG THERAPY
     Dosage: INITIAL DOSE OF 1 MG/KG/DAY, WITH PROGRESSIVELY TAPERING DOSAGES FOR 2 MONTHS
     Route: 048
  2. AZATHIOPRINE. [Suspect]
     Active Substance: AZATHIOPRINE
     Indication: IMMUNOSUPPRESSANT DRUG THERAPY
     Dosage: 1.25 MG/KG/DAY FOR 2 MONTHS
     Route: 065
  3. IMMUNE GLOBULIN [Suspect]
     Active Substance: HUMAN IMMUNOGLOBULIN G
     Indication: IMMUNOSUPPRESSANT DRUG THERAPY
     Dosage: ONE CYCLE CONSISTING OF ONE INFUSION OF 400 MG/KG/DAY FOR 5 CONSECUTIVE DAYS
     Route: 041
  4. RITUXIMAB [Suspect]
     Active Substance: RITUXIMAB
     Indication: IMMUNOSUPPRESSANT DRUG THERAPY
     Dosage: ONE CYCLE CONSISTING OF ONE INFUSION OF 375 MG/M2/EVERY WEEK FOR 4 WEEKS
     Route: 050

REACTIONS (2)
  - Pemphigus [Unknown]
  - Kaposi^s sarcoma [Recovering/Resolving]
